FAERS Safety Report 5102095-9 (Version None)
Quarter: 2006Q3

REPORT INFORMATION
  Report Type: 
  Country: None (occurrence: None)
  Receive Date: 20060912
  Receipt Date: 20060628
  Transmission Date: 20061208
  Serious: Yes (Hospitalization, Other)
  Sender: FDA-Public Use
  Company Number: PHBS2006JP09837

PATIENT
  Age: 53 Year
  Sex: Female

DRUGS (1)
  1. TEGRETOL [Suspect]
     Indication: TEMPORAL LOBE EPILEPSY
     Dosage: 300 MG/DAY
     Route: 048
     Dates: start: 20020930

REACTIONS (5)
  - CEREBRAL ATROPHY [None]
  - COMPUTERISED TOMOGRAM ABNORMAL [None]
  - CONVULSION [None]
  - DRUG LEVEL BELOW THERAPEUTIC [None]
  - NUCLEAR MAGNETIC RESONANCE IMAGING ABNORMAL [None]
